FAERS Safety Report 5267599-7 (Version None)
Quarter: 2007Q1

REPORT INFORMATION
  Report Type: 
  Country: None (occurrence: None)
  Receive Date: 20070316
  Receipt Date: 20070314
  Transmission Date: 20070707
  Serious: Yes (Death, Other)
  Sender: FDA-Public Use
  Company Number: US-BRISTOL-MYERS SQUIBB COMPANY-13709159

PATIENT
  Age: 28 Year
  Sex: Female

DRUGS (1)
  1. LOMUSTINE [Suspect]
     Indication: ANAPLASTIC ASTROCYTOMA

REACTIONS (6)
  - ABDOMINAL PAIN [None]
  - BONE MARROW FAILURE [None]
  - DEATH [None]
  - MENTAL STATUS CHANGES [None]
  - OVERDOSE [None]
  - PULMONARY TOXICITY [None]
